FAERS Safety Report 6272209-6 (Version None)
Quarter: 2009Q3

REPORT INFORMATION
  Report Type: 
  Country: None (occurrence: None)
  Receive Date: 20090717
  Receipt Date: 20090707
  Transmission Date: 20100115
  Serious: Yes (Other)
  Sender: FDA-Public Use
  Company Number: US-JNJFOC-20090702220

PATIENT
  Sex: Female

DRUGS (4)
  1. SIMPONI [Suspect]
     Indication: RHEUMATOID ARTHRITIS
     Route: 058
  2. DIOVAN HCT [Concomitant]
     Indication: BLOOD PRESSURE
  3. CELEBREX [Concomitant]
  4. PREDNISONE [Concomitant]

REACTIONS (1)
  - BRADYCARDIA [None]
